FAERS Safety Report 18704724 (Version 1)
Quarter: 2021Q1

REPORT INFORMATION
  Report Type: Report from Study
  Country: None (occurrence: US)
  Receive Date: 20210105
  Receipt Date: 20210105
  Transmission Date: 20210419
  Serious: Yes (Other)
  Sender: FDA-Public Use
  Company Number: US-ABBVIE-20K-163-3622456-00

PATIENT
  Age: 60 Year
  Sex: Female

DRUGS (10)
  1. MAGNESIUM CITRATE. [Concomitant]
     Active Substance: MAGNESIUM CITRATE
     Indication: PRODUCT USED FOR UNKNOWN INDICATION
     Dosage: 100 MG PO DAILY
     Route: 048
     Dates: start: 20200722
  2. VITAMIN B COMPLEX [Concomitant]
     Active Substance: CYANOCOBALAMIN\DEXPANTHENOL\NIACINAMIDE\PYRIDOXINE HYDROCHLORIDE\RIBOFLAVIN 5^-PHOSPHATE SODIUM\THIAMINE HYDROCHLORIDE\VITAMIN B COMPLEX
     Indication: PRODUCT USED FOR UNKNOWN INDICATION
     Route: 048
     Dates: start: 20200722
  3. SINGULAIR [Concomitant]
     Active Substance: MONTELUKAST SODIUM
     Indication: PRODUCT USED FOR UNKNOWN INDICATION
     Dosage: 10 MG TABLET 1 TAB QHS
     Route: 048
     Dates: start: 20200722
  4. ANASTROZOLE. [Concomitant]
     Active Substance: ANASTROZOLE
     Indication: PRODUCT USED FOR UNKNOWN INDICATION
     Dosage: 1 MILLIGRAM TABLET 1 PER ORAL DAILY
     Route: 048
     Dates: start: 20200722
  5. CALCIUM 600 PLUS VITAMIN D3 [Concomitant]
     Indication: PRODUCT USED FOR UNKNOWN INDICATION
     Dosage: 600 MILIGRAM CALCIUM 200 UNIT CAPSULE
     Route: 048
     Dates: start: 20200722
  6. VITAMIN D3 [Concomitant]
     Active Substance: CHOLECALCIFEROL
     Indication: PRODUCT USED FOR UNKNOWN INDICATION
     Dosage: 25 MCG (1000 UNIT) TABLET 2 PO DAILY
     Route: 048
     Dates: start: 20200722
  7. NEURONTIN [Concomitant]
     Active Substance: GABAPENTIN
     Indication: PRODUCT USED FOR UNKNOWN INDICATION
     Dosage: 300 MG CAPSULE PO AT NIGHT
     Route: 048
     Dates: start: 20201019
  8. ONDANSETRON [Concomitant]
     Active Substance: ONDANSETRON
     Indication: NAUSEA
     Dosage: 4 MG DISINTEGRATING TABLET 1 TO 2 PO EVERY 6 TO 8 HOURS
     Route: 048
     Dates: start: 20200911
  9. VENCLEXTA [Suspect]
     Active Substance: VENETOCLAX
     Indication: MYELODYSPLASTIC SYNDROME
     Dosage: WITH FOOD
     Route: 048
     Dates: start: 20200930
  10. VENCLEXTA [Suspect]
     Active Substance: VENETOCLAX
     Dosage: WITH FOOD
     Route: 048

REACTIONS (2)
  - Bone marrow transplant [Unknown]
  - Off label use [Unknown]

NARRATIVE: CASE EVENT DATE: 20200930
